FAERS Safety Report 8093043-0 (Version None)
Quarter: 2012Q1

REPORT INFORMATION
  Report Type: 
  Country: None (occurrence: None)
  Receive Date: 20120128
  Receipt Date: 20110926
  Transmission Date: 20120608
  Serious: No
  Sender: FDA-Public Use
  Company Number: US-ABBOTT-10P-163-0693778-00

PATIENT
  Sex: Male

DRUGS (6)
  1. BYSTOLIC [Concomitant]
     Indication: HYPERTENSION
     Route: 048
  2. ACETAMINOPHEN [Concomitant]
     Indication: PRODUCT USED FOR UNKNOWN INDICATION
  3. MOBIC [Concomitant]
     Indication: INFLAMMATION
  4. CRESTOR [Concomitant]
     Indication: BLOOD CHOLESTEROL INCREASED
  5. HUMIRA [Suspect]
     Indication: PSORIATIC ARTHROPATHY
  6. HUMIRA [Suspect]
     Indication: RHEUMATOID ARTHRITIS
     Route: 058
     Dates: start: 20101101

REACTIONS (8)
  - DYSPNOEA [None]
  - ALOPECIA [None]
  - SINUS DISORDER [None]
  - PRURITUS [None]
  - WEIGHT INCREASED [None]
  - HYPERTENSION [None]
  - DRUG EFFECT DECREASED [None]
  - FATIGUE [None]
